FAERS Safety Report 5622036-5 (Version None)
Quarter: 2008Q1

REPORT INFORMATION
  Report Type: 
  Country: None (occurrence: None)
  Receive Date: 20080211
  Receipt Date: 20080131
  Transmission Date: 20080703
  Serious: Yes (Hospitalization)
  Sender: FDA-Public Use
  Company Number: US-JNJFOC-20070604460

PATIENT
  Sex: Female
  Weight: 86.64 kg

DRUGS (15)
  1. TRAMADOL HYDROCHLORIDE ER [Suspect]
     Route: 048
  2. TRAMADOL HYDROCHLORIDE ER [Suspect]
     Indication: OSTEOARTHRITIS
     Route: 048
  3. MELOXICAM [Suspect]
     Route: 048
  4. MELOXICAM [Suspect]
     Indication: OSTEOARTHRITIS
     Route: 048
  5. FEXOFENADINE [Concomitant]
     Indication: MULTIPLE ALLERGIES
     Route: 065
  6. FLONASE [Concomitant]
     Indication: MULTIPLE ALLERGIES
     Route: 065
  7. CHLORTHALIDONE [Concomitant]
     Indication: HYPERTENSION
     Route: 065
  8. LISINOPRIL [Concomitant]
     Indication: HYPERTENSION
     Route: 065
  9. EVISTA [Concomitant]
     Indication: OSTEOPOROSIS
     Route: 065
  10. ZANAFLEX [Concomitant]
     Indication: MUSCULOSKELETAL PAIN
     Route: 065
  11. HYDROCODONE BITARTRATE [Concomitant]
     Indication: MUSCULOSKELETAL PAIN
     Dosage: 2.5/500MG IN 1 TABLET
     Route: 065
  12. ACTOS [Concomitant]
     Indication: DIABETES MELLITUS
     Route: 065
  13. LYRICA [Concomitant]
     Route: 065
  14. LIDODERM [Concomitant]
     Route: 065
  15. CHLOROTHIAZIDE [Concomitant]
     Route: 065

REACTIONS (1)
  - RECTAL HAEMORRHAGE [None]
